FAERS Safety Report 20851936 (Version 3)
Quarter: 2022Q2

REPORT INFORMATION
  Report Type: Report from Study
  Country: US (occurrence: US)
  Receive Date: 20220520
  Receipt Date: 20220615
  Transmission Date: 20220721
  Serious: No
  Sender: FDA-Public Use
  Company Number: US-NOVARTISTESTPH-NVSC2022US115562

PATIENT
  Age: 12 Year
  Weight: 43.7 kg

DRUGS (1)
  1. VIJOICE [Suspect]
     Active Substance: ALPELISIB
     Indication: PIK3CA related overgrowth spectrum
     Dosage: 50 MG
     Route: 065
     Dates: start: 20220304, end: 20220327

REACTIONS (1)
  - Hyperglycaemia [Not Recovered/Not Resolved]

NARRATIVE: CASE EVENT DATE: 20220329
